FAERS Safety Report 20054103 (Version 1)
Quarter: 2021Q4

REPORT INFORMATION
  Report Type: Report from Study
  Country: US (occurrence: US)
  Receive Date: 20211110
  Receipt Date: 20211110
  Transmission Date: 20220303
  Serious: Yes (Death)
  Sender: FDA-Public Use
  Company Number: US-UCBSA-2021051837

PATIENT
  Age: 97 Year
  Sex: Female

DRUGS (1)
  1. BRIVARACETAM [Suspect]
     Active Substance: BRIVARACETAM
     Indication: Seizure
     Dosage: UNK
     Dates: end: 20210831

REACTIONS (2)
  - Death [Fatal]
  - Therapeutic response unexpected [Unknown]

NARRATIVE: CASE EVENT DATE: 20210831
